FAERS Safety Report 26050746 (Version 1)
Quarter: 2025Q4

REPORT INFORMATION
  Report Type: Spontaneous
  Country: EU (occurrence: EU)
  Receive Date: 20251116
  Receipt Date: 20251116
  Transmission Date: 20260118
  Serious: Yes (Disabling)
  Sender: JOHNSON AND JOHNSON
  Company Number: None

PATIENT
  Age: 46 Year
  Sex: Female

DRUGS (1)
  1. INFLIXIMAB [Suspect]
     Active Substance: INFLIXIMAB
     Indication: Crohn^s disease
     Dosage: STRENGTH: UNKNOWN.  DOSAGE: 300 MG ONCE IN FEBRUARY, MARCH, APRIL AND JUNE.
     Route: 041
     Dates: start: 20200228, end: 20200724

REACTIONS (7)
  - Palmoplantar pustulosis [Not Recovered/Not Resolved]
  - Lichen planus [Unknown]
  - Abscess [Recovered/Resolved]
  - Rash [Recovered/Resolved]
  - Folliculitis [Recovered/Resolved]
  - Genital infection fungal [Recovered/Resolved]
  - Alopecia [Recovered/Resolved]

NARRATIVE: CASE EVENT DATE: 20200101
